FAERS Safety Report 10241374 (Version 1)
Quarter: 2014Q2

REPORT INFORMATION
  Report Type: Spontaneous
  Country: US (occurrence: US)
  Receive Date: 20140617
  Receipt Date: 20140617
  Transmission Date: 20141212
  Serious: Yes (Other)
  Sender: FDA-Public Use
  Company Number: US-009507513-1406USA008327

PATIENT
  Sex: Female

DRUGS (1)
  1. COPPERTONE SENSITIVE SKIN LOTION SPF-50 [Suspect]
     Indication: SKIN CANCER
     Dosage: UNK, UNKNOWN
     Route: 061

REACTIONS (1)
  - Skin cancer [Unknown]
